FAERS Safety Report 7170545-2 (Version None)
Quarter: 2010Q4

REPORT INFORMATION
  Report Type: 
  Country: None (occurrence: None)
  Receive Date: 20101217
  Receipt Date: 20101213
  Transmission Date: 20110411
  Serious: Yes (Disabling)
  Sender: FDA-Public Use
  Company Number: B0678976A

PATIENT
  Sex: Female

DRUGS (2)
  1. NIQUITIN MINI LOZENGES 1.5MG [Suspect]
     Indication: PRODUCT USED FOR UNKNOWN INDICATION
     Route: 002
     Dates: start: 20100928
  2. PAINKILLER (UNKNOWN) [Concomitant]
     Indication: PRODUCT USED FOR UNKNOWN INDICATION
     Route: 065

REACTIONS (3)
  - ANXIETY [None]
  - MUSCLE SPASMS [None]
  - PALPITATIONS [None]
